FAERS Safety Report 25931409 (Version 1)
Quarter: 2025Q4

REPORT INFORMATION
  Report Type: Spontaneous
  Country: US (occurrence: None)
  Receive Date: 20251016
  Receipt Date: 20251016
  Transmission Date: 20260117
  Serious: Yes (Hospitalization)
  Sender: FDA-CTU
  Company Number: None

PATIENT
  Age: 18 Year
  Sex: Male

DRUGS (6)
  1. ENVARSUS XR [Suspect]
     Active Substance: TACROLIMUS
     Indication: Renal transplant
     Dosage: FREQUENCY : DAILY;?
     Route: 048
     Dates: start: 20250522
  2. amlopdipine 5 mg tab [Concomitant]
  3. AZATHIOPRINE [Concomitant]
     Active Substance: AZATHIOPRINE
  4. CEPHALEXIN [Concomitant]
     Active Substance: CEPHALEXIN
  5. oxybutynin er 10mg tab [Concomitant]
  6. vitamin d 50,000iu cap [Concomitant]

REACTIONS (2)
  - Vomiting [None]
  - Abdominal pain [None]

NARRATIVE: CASE EVENT DATE: 20250917
